FAERS Safety Report 4632922-0 (Version None)
Quarter: 2005Q2

REPORT INFORMATION
  Report Type: 
  Country: None (occurrence: None)
  Receive Date: 20050412
  Receipt Date: 20050404
  Transmission Date: 20051028
  Serious: Yes (Other)
  Sender: FDA-Public Use
  Company Number: BR-JNJFOC-20050401427

PATIENT
  Sex: Male
  Weight: 45 kg

DRUGS (6)
  1. TYLENOL (CAPLET) [Suspect]
  2. TYLENOL (CAPLET) [Suspect]
     Indication: INFLUENZA
  3. TOPLEXIL [Suspect]
  4. TOPLEXIL [Suspect]
  5. TOPLEXIL [Suspect]
  6. TOPLEXIL [Suspect]
     Indication: DRUG USE FOR UNKNOWN INDICATION
     Dosage: 1 SPOON

REACTIONS (1)
  - HYPERSENSITIVITY [None]
